FAERS Safety Report 14391220 (Version 1)
Quarter: 2018Q1

REPORT INFORMATION
  Report Type: Spontaneous
  Country: US (occurrence: US)
  Receive Date: 20180116
  Receipt Date: 20180116
  Transmission Date: 20180509
  Serious: No
  Sender: FDA-Public Use
  Company Number: US-ASTRAZENECA-2018SE04386

PATIENT
  Sex: Female
  Weight: 54.4 kg

DRUGS (3)
  1. NEXIUM [Suspect]
     Active Substance: ESOMEPRAZOLE MAGNESIUM
     Indication: ULCER HAEMORRHAGE
     Route: 048
     Dates: start: 201710
  2. EYE DROPS UNKNOWN [Concomitant]
     Indication: GLAUCOMA
     Dosage: UNKNOWN
     Route: 047
  3. NEXIUM [Suspect]
     Active Substance: ESOMEPRAZOLE MAGNESIUM
     Indication: ULCER HAEMORRHAGE
     Route: 048
     Dates: start: 201708

REACTIONS (8)
  - Oropharyngeal pain [Unknown]
  - Product use issue [Recovered/Resolved]
  - Nausea [Unknown]
  - Haemoglobin decreased [Unknown]
  - Abdominal discomfort [Not Recovered/Not Resolved]
  - Headache [Unknown]
  - Retching [Unknown]
  - Throat irritation [Unknown]

NARRATIVE: CASE EVENT DATE: 201708
